FAERS Safety Report 4611505-2 (Version None)
Quarter: 2005Q1

REPORT INFORMATION
  Report Type: 
  Country: None (occurrence: None)
  Receive Date: 20050315
  Receipt Date: 20050315
  Transmission Date: 20050727
  Serious: Yes (Life-Threatening, Hospitalization)
  Sender: FDA-Public Use
  Company Number: None

PATIENT
  Age: 2 Year
  Sex: Male
  Weight: 12.2471 kg

DRUGS (2)
  1. ELIDEL [Suspect]
     Indication: ECZEMA
     Dosage: AS NECESSARY    TWICE DAILY   TOPICAL
     Route: 061
     Dates: start: 20030301, end: 20030901
  2. CHEMOTHERAPY [Concomitant]

REACTIONS (2)
  - ECZEMA [None]
  - NON-HODGKIN'S LYMPHOMA [None]
